FAERS Safety Report 4922392-7 (Version None)
Quarter: 2006Q1

REPORT INFORMATION
  Report Type: 
  Country: None (occurrence: None)
  Receive Date: 20060224
  Receipt Date: 20051215
  Transmission Date: 20060701
  Serious: Yes (Hospitalization)
  Sender: FDA-Public Use
  Company Number: US-MERCK-0512USA02477

PATIENT
  Age: 66 Year
  Sex: Male
  Weight: 82 kg

DRUGS (3)
  1. VIOXX [Suspect]
     Indication: MONARTHRITIS
     Route: 048
     Dates: start: 20001023, end: 20031221
  2. TYLENOL (CAPLET) [Concomitant]
     Route: 065
  3. ASPIRIN [Concomitant]
     Route: 048

REACTIONS (24)
  - ABDOMINAL PAIN [None]
  - ANGINA PECTORIS [None]
  - COLOUR BLINDNESS [None]
  - DIABETES MELLITUS NON-INSULIN-DEPENDENT [None]
  - DIARRHOEA [None]
  - DIZZINESS [None]
  - DYSPNOEA [None]
  - HEADACHE [None]
  - HYPERLIPIDAEMIA [None]
  - HYPERTENSIVE HEART DISEASE [None]
  - HYPOACUSIS [None]
  - ISCHAEMIA [None]
  - MIGRAINE [None]
  - MUSCLE SPASMS [None]
  - MYOCARDIAL INFARCTION [None]
  - NON-CARDIAC CHEST PAIN [None]
  - POSTNASAL DRIP [None]
  - SINUSITIS [None]
  - STAPHYLOCOCCAL INFECTION [None]
  - TINNITUS [None]
  - TOE DEFORMITY [None]
  - TRANSIENT ISCHAEMIC ATTACK [None]
  - VISUAL ACUITY REDUCED [None]
  - WHIPLASH INJURY [None]
